FAERS Safety Report 4549460-6 (Version None)
Quarter: 2005Q1

REPORT INFORMATION
  Report Type: 
  Country: None (occurrence: None)
  Receive Date: 20050106
  Receipt Date: 20041228
  Transmission Date: 20050727
  Serious: Yes (Other)
  Sender: FDA-Public Use
  Company Number: 200416361BCC

PATIENT
  Age: 27 Year
  Sex: Female
  Weight: 63.5036 kg

DRUGS (1)
  1. BACTINE LIQUID [Suspect]
     Dosage: INTRAOCULAR
     Route: 031
     Dates: start: 20041228

REACTIONS (3)
  - ACCIDENTAL EXPOSURE [None]
  - CHEMICAL BURNS OF EYE [None]
  - CONTACT LENS COMPLICATION [None]
